FAERS Safety Report 21872480 (Version 3)
Quarter: 2023Q1

REPORT INFORMATION
  Report Type: Report from Study
  Country: JP (occurrence: JP)
  Receive Date: 20230117
  Receipt Date: 20230330
  Transmission Date: 20230418
  Serious: Yes (Other)
  Sender: FDA-Public Use
  Company Number: JP-OTSUKA-2022_053869

PATIENT
  Age: 52 Year
  Sex: Female
  Weight: 77 kg

DRUGS (17)
  1. ARIPIPRAZOLE [Suspect]
     Active Substance: ARIPIPRAZOLE
     Indication: Bipolar I disorder
     Dosage: 400MG/SHOT
     Route: 030
     Dates: start: 20220912, end: 20220912
  2. ARIPIPRAZOLE [Suspect]
     Active Substance: ARIPIPRAZOLE
     Dosage: 400MG/SHOT
     Route: 030
     Dates: start: 20220328, end: 20220328
  3. ARIPIPRAZOLE [Suspect]
     Active Substance: ARIPIPRAZOLE
     Dosage: 400MG/SHOT
     Route: 030
     Dates: start: 20220425, end: 20220425
  4. ARIPIPRAZOLE [Suspect]
     Active Substance: ARIPIPRAZOLE
     Dosage: 400MG/SHOT
     Route: 030
     Dates: start: 20220523, end: 20220523
  5. ARIPIPRAZOLE [Suspect]
     Active Substance: ARIPIPRAZOLE
     Dosage: 400MG/SHOT
     Route: 030
     Dates: start: 20220620, end: 20220620
  6. ARIPIPRAZOLE [Suspect]
     Active Substance: ARIPIPRAZOLE
     Dosage: 400MG/SHOT
     Route: 030
     Dates: start: 20220716, end: 20220716
  7. ARIPIPRAZOLE [Suspect]
     Active Substance: ARIPIPRAZOLE
     Dosage: 400MG/SHOT
     Route: 030
     Dates: start: 20220808, end: 20220808
  8. ABILIFY [Suspect]
     Active Substance: ARIPIPRAZOLE
     Indication: Bipolar I disorder
     Dosage: 24 MG, UNK
     Route: 065
  9. LATUDA [Concomitant]
     Active Substance: LURASIDONE HYDROCHLORIDE
     Indication: Bipolar I disorder
     Dosage: 80 MG/DAY
     Route: 048
     Dates: end: 20220829
  10. VALPROATE SODIUM [Concomitant]
     Active Substance: VALPROATE SODIUM
     Indication: Bipolar I disorder
     Dosage: 1000 MG/DAY
     Route: 048
  11. BLONANSERIN [Concomitant]
     Active Substance: BLONANSERIN
     Indication: Schizophrenia
     Dosage: 8 MG/DAY
     Route: 048
     Dates: end: 20220313
  12. BLONANSERIN [Concomitant]
     Active Substance: BLONANSERIN
     Indication: Product used for unknown indication
     Dosage: UNK
     Route: 048
  13. ARIPIPRAZOLE [Concomitant]
     Active Substance: ARIPIPRAZOLE
     Indication: Bipolar I disorder
     Dosage: 12 MG/DAY
     Route: 048
     Dates: start: 20220314, end: 20220327
  14. ARIPIPRAZOLE [Concomitant]
     Active Substance: ARIPIPRAZOLE
     Dosage: 24 MG/DAY
     Route: 048
     Dates: start: 20220328, end: 20220410
  15. ARIPIPRAZOLE [Concomitant]
     Active Substance: ARIPIPRAZOLE
     Dosage: 12 MG/DAY
     Route: 048
     Dates: start: 20220411, end: 20220424
  16. ARIPIPRAZOLE [Concomitant]
     Active Substance: ARIPIPRAZOLE
     Dosage: 6 MG/DAY
     Route: 048
     Dates: start: 20220425, end: 20220508
  17. RIVOTRIL [Concomitant]
     Active Substance: CLONAZEPAM
     Indication: Product used for unknown indication
     Dosage: 1.5MG/DAY
     Route: 048

REACTIONS (4)
  - Loss of consciousness [Not Recovered/Not Resolved]
  - Depressive symptom [Unknown]
  - Dyskinesia [Unknown]
  - Inappropriate schedule of product administration [Unknown]

NARRATIVE: CASE EVENT DATE: 20221017
